FAERS Safety Report 16470157 (Version 1)
Quarter: 2019Q2

REPORT INFORMATION
  Report Type: Spontaneous
  Country: TW (occurrence: TW)
  Receive Date: 20190624
  Receipt Date: 20190624
  Transmission Date: 20190711
  Serious: Yes (Death, Other)
  Sender: FDA-Public Use
  Company Number: TW-ROCHE-GNE237714

PATIENT
  Age: 79 Year
  Sex: Male

DRUGS (4)
  1. BETAMETHASONE. [Concomitant]
     Active Substance: BETAMETHASONE
     Indication: PREMEDICATION
     Route: 065
  2. PARACETAMOL [Concomitant]
     Active Substance: ACETAMINOPHEN
     Indication: PREMEDICATION
     Route: 048
  3. DIPHENHYDRAMINE. [Concomitant]
     Active Substance: DIPHENHYDRAMINE
     Indication: PREMEDICATION
     Route: 065
  4. RITUXIMAB. [Suspect]
     Active Substance: RITUXIMAB
     Indication: LYMPHOMA
     Dosage: 375 MG/M2, UNK
     Route: 042

REACTIONS (7)
  - Hypoxia [Unknown]
  - Dyspnoea [Unknown]
  - Tachycardia [Unknown]
  - Hypotension [Unknown]
  - Interstitial lung disease [Unknown]
  - Haemophagocytic lymphohistiocytosis [Unknown]
  - Traumatic haemothorax [Fatal]
